FAERS Safety Report 24817182 (Version 4)
Quarter: 2025Q3

REPORT INFORMATION
  Report Type: Report from Study
  Country: US (occurrence: US)
  Receive Date: 20250108
  Receipt Date: 20250708
  Transmission Date: 20251021
  Serious: Yes (Hospitalization)
  Sender: TAKEDA
  Company Number: US-TAKEDA-2023TUS014154

PATIENT
  Sex: Male
  Weight: 77 kg

DRUGS (18)
  1. HUMAN IMMUNOGLOBULIN G\HYALURONIDASE RECOMBINANT HUMAN [Suspect]
     Active Substance: HUMAN IMMUNOGLOBULIN G\HYALURONIDASE (HUMAN RECOMBINANT)
     Indication: Immunodeficiency common variable
     Dosage: 40 GRAM, Q4WEEKS
  2. BRIMONIDINE TARTRATE [Concomitant]
     Active Substance: BRIMONIDINE TARTRATE
  3. DORZOLAMIDE HYDROCHLORIDE [Concomitant]
     Active Substance: DORZOLAMIDE HYDROCHLORIDE
  4. LATANOPROST [Concomitant]
     Active Substance: LATANOPROST
  5. RHOPRESSA [Concomitant]
     Active Substance: NETARSUDIL MESYLATE
  6. REFRESH TEARS [Concomitant]
     Active Substance: CARBOXYMETHYLCELLULOSE SODIUM
  7. METOPROLOL SUCCINATE [Concomitant]
     Active Substance: METOPROLOL SUCCINATE
  8. BRINZOLAMIDE [Concomitant]
     Active Substance: BRINZOLAMIDE
  9. MYCOPHENOLATE MOFETIL [Concomitant]
     Active Substance: MYCOPHENOLATE MOFETIL
  10. PREDNISONE [Concomitant]
     Active Substance: PREDNISONE
  11. DIPHENHYDRAMINE [Concomitant]
     Active Substance: DIPHENHYDRAMINE
  12. EPINEPHRINE [Concomitant]
     Active Substance: EPINEPHRINE
  13. ACETAMINOPHEN [Concomitant]
     Active Substance: ACETAMINOPHEN
  14. SODIUM CHLORIDE [Concomitant]
     Active Substance: SODIUM CHLORIDE
  15. LIDOCAINE [Concomitant]
     Active Substance: LIDOCAINE
  16. DORZOLAMIDE [Concomitant]
     Active Substance: DORZOLAMIDE
  17. BRIMONIDINE [Concomitant]
     Active Substance: BRIMONIDINE TARTRATE
  18. DIPHENHYDRAMINE HYDROCHLORIDE [Concomitant]
     Active Substance: DIPHENHYDRAMINE HYDROCHLORIDE

REACTIONS (11)
  - Diarrhoea [Unknown]
  - Weight decreased [Unknown]
  - Allergy to animal [Unknown]
  - Fall [Unknown]
  - Skin abrasion [Unknown]
  - Herpes zoster [Unknown]
  - Product distribution issue [Unknown]
  - Product dose omission issue [Unknown]
  - Nasal congestion [Unknown]
  - Cough [Unknown]
  - Dyspnoea [Unknown]
